FAERS Safety Report 11655553 (Version 1)
Quarter: 2015Q4

REPORT INFORMATION
  Report Type: Spontaneous
  Country: US (occurrence: US)
  Receive Date: 20151023
  Receipt Date: 20151023
  Transmission Date: 20160304
  Serious: Yes (Hospitalization, Other)
  Sender: FDA-Public Use
  Company Number: US-BAYER-2015-446530

PATIENT
  Sex: Female

DRUGS (1)
  1. CIPRO [Suspect]
     Active Substance: CIPROFLOXACIN HYDROCHLORIDE

REACTIONS (6)
  - Joint stiffness [Recovering/Resolving]
  - Tendon injury [Recovering/Resolving]
  - Pneumonia [None]
  - Musculoskeletal stiffness [None]
  - Tendon disorder [Recovering/Resolving]
  - Pain [Recovering/Resolving]
